FAERS Safety Report 14298752 (Version 1)
Quarter: 2017Q4

REPORT INFORMATION
  Report Type: Spontaneous
  Country: US (occurrence: US)
  Receive Date: 20171218
  Receipt Date: 20171218
  Transmission Date: 20180321
  Serious: No
  Sender: FDA-Public Use
  Company Number: None

PATIENT
  Age: 63 Year
  Sex: Female
  Weight: 71.67 kg

DRUGS (2)
  1. LEVOTHYROXINE SODIUM. [Suspect]
     Active Substance: LEVOTHYROXINE SODIUM
     Indication: HYPOTHYROIDISM
     Dosage: 1 TABLET DAILY ONCE IN AM BY MOUTH 1 HOUR BEFORE EATING
     Route: 048
     Dates: start: 20170131, end: 20171016
  2. ALIVE MULTIVITAMIN [Concomitant]

REACTIONS (2)
  - Palpitations [None]
  - Alopecia [None]

NARRATIVE: CASE EVENT DATE: 2017
